FAERS Safety Report 9384365 (Version 1)
Quarter: 2013Q3

REPORT INFORMATION
  Report Type: Report from Study
  Country: FR (occurrence: FR)
  Receive Date: 20130705
  Receipt Date: 20130705
  Transmission Date: 20140515
  Serious: Yes (Death)
  Sender: FDA-Public Use
  Company Number: PHHY2013FR069987

PATIENT
  Age: 82 Year
  Sex: Female
  Weight: 62 kg

DRUGS (3)
  1. GLIVEC [Suspect]
     Indication: CHRONIC MYELOID LEUKAEMIA
     Dosage: 400 MG, QD
     Dates: start: 20060531, end: 200710
  2. GLIVEC [Suspect]
     Dosage: 600 MG, QD
     Dates: start: 200710, end: 200710
  3. GLIVEC [Suspect]
     Dosage: 300 MG, QD
     Dates: start: 2007, end: 20081029

REACTIONS (4)
  - Death [Fatal]
  - Drug intolerance [Unknown]
  - Therapeutic response decreased [Unknown]
  - No therapeutic response [Unknown]
